FAERS Safety Report 17537723 (Version 1)
Quarter: 2020Q1

REPORT INFORMATION
  Report Type: Spontaneous
  Country: US (occurrence: US)
  Receive Date: 20200313
  Receipt Date: 20200313
  Transmission Date: 20200409
  Serious: Yes (Other)
  Sender: FDA-Public Use
  Company Number: US-ELI_LILLY_AND_COMPANY-US202003002023

PATIENT
  Sex: Male

DRUGS (1)
  1. BASAGLAR [Suspect]
     Active Substance: INSULIN GLARGINE
     Indication: PRODUCT USED FOR UNKNOWN INDICATION
     Dosage: UNK UNK, UNKNOWN
     Route: 065

REACTIONS (15)
  - Pruritus [Recovering/Resolving]
  - Ear pain [Recovering/Resolving]
  - Peripheral swelling [Recovering/Resolving]
  - Pain [Recovering/Resolving]
  - Eye pain [Recovering/Resolving]
  - Balance disorder [Recovering/Resolving]
  - Eye pruritus [Recovering/Resolving]
  - Dysstasia [Unknown]
  - Hypersensitivity [Unknown]
  - Burning sensation [Recovering/Resolving]
  - Poor quality sleep [Unknown]
  - Discomfort [Recovering/Resolving]
  - Hypoacusis [Unknown]
  - Periorbital swelling [Unknown]
  - Skin discolouration [Unknown]
